FAERS Safety Report 16006080 (Version 1)
Quarter: 2019Q1

REPORT INFORMATION
  Report Type: Spontaneous
  Country: US (occurrence: US)
  Receive Date: 20190226
  Receipt Date: 20190226
  Transmission Date: 20190418
  Serious: No
  Sender: FDA-Public Use
  Company Number: US-TEVA-2019-US-1008554

PATIENT
  Sex: Female

DRUGS (2)
  1. OXALIPLATIN TEVA [Suspect]
     Active Substance: OXALIPLATIN
     Dosage: 5 MG / ML
  2. OXALIPLATIN TEVA [Suspect]
     Active Substance: OXALIPLATIN
     Dosage: 5 MG / ML

REACTIONS (4)
  - Sensation of foreign body [Unknown]
  - Urticaria [Unknown]
  - Product substitution issue [Unknown]
  - Flushing [Unknown]
